FAERS Safety Report 9614016 (Version 1)
Quarter: 2013Q4

REPORT INFORMATION
  Report Type: Spontaneous
  Country: US (occurrence: US)
  Receive Date: 20131011
  Receipt Date: 20131011
  Transmission Date: 20140711
  Serious: Yes (Hospitalization)
  Sender: FDA-Public Use
  Company Number: US-MERCK-1310USA004121

PATIENT
  Age: 17 Year
  Sex: Male

DRUGS (1)
  1. SAPHRIS [Suspect]
     Indication: ATTENTION DEFICIT/HYPERACTIVITY DISORDER
     Dosage: 10 MG, UNK
     Route: 060
     Dates: start: 2013

REACTIONS (3)
  - Attention deficit/hyperactivity disorder [Unknown]
  - Drug administered to patient of inappropriate age [Unknown]
  - Overdose [Unknown]
